FAERS Safety Report 9751919 (Version 1)
Quarter: 2013Q4

REPORT INFORMATION
  Report Type: Spontaneous
  Country: US (occurrence: US)
  Receive Date: 20131213
  Receipt Date: 20131213
  Transmission Date: 20140711
  Serious: Yes (Disabling, Other)
  Sender: FDA-Public Use
  Company Number: US-BRISTOL-MYERS SQUIBB COMPANY-19886969

PATIENT
  Age: 59 Year
  Sex: Male
  Weight: 90.7 kg

DRUGS (4)
  1. SUSTIVA [Suspect]
  2. VILAZODONE HYDROCHLORIDE [Suspect]
     Indication: DEPRESSION
     Dosage: 10MG/1/1DAY:2013-2013?40MG/1/1DAY:2013?20MG/1/1/DAY:2013-2013
     Route: 048
     Dates: start: 2013
  3. VITAMINS NOS [Concomitant]
  4. MINERALS [Concomitant]

REACTIONS (5)
  - Diarrhoea [Not Recovered/Not Resolved]
  - Nausea [Unknown]
  - Decreased appetite [Unknown]
  - Haemorrhoids [Unknown]
  - Mania [Recovered/Resolved]
